FAERS Safety Report 25586485 (Version 1)
Quarter: 2025Q3

REPORT INFORMATION
  Report Type: Spontaneous
  Country: US (occurrence: US)
  Receive Date: 20250721
  Receipt Date: 20250721
  Transmission Date: 20251020
  Serious: Yes (Other)
  Sender: PFIZER
  Company Number: US-PFIZER INC-PV202500086563

PATIENT

DRUGS (1)
  1. CRIZOTINIB [Suspect]
     Active Substance: CRIZOTINIB

REACTIONS (6)
  - Neuropathy peripheral [Unknown]
  - Carpal tunnel syndrome [Unknown]
  - Movement disorder [Unknown]
  - Weight increased [Unknown]
  - Fatigue [Unknown]
  - Gait disturbance [Unknown]
